FAERS Safety Report 5125062-8 (Version None)
Quarter: 2006Q4

REPORT INFORMATION
  Report Type: 
  Country: None (occurrence: None)
  Receive Date: 20061010
  Receipt Date: 20061010
  Transmission Date: 20070319
  Serious: Yes (Hospitalization)
  Sender: FDA-Public Use
  Company Number: None

PATIENT
  Age: 67 Year
  Sex: Male

DRUGS (7)
  1. GLIPIZIDE [Suspect]
     Indication: DIABETES MELLITUS NON-INSULIN-DEPENDENT
     Dosage: 15 MG QD
     Dates: start: 20040701
  2. BACLOFEN [Concomitant]
  3. CLONIZEPAM [Concomitant]
  4. FOLIC ACID [Concomitant]
  5. THEOPHYLLINE [Concomitant]
  6. BUPROPION HCL [Concomitant]
  7. FOSINOPRIL SODIUM [Concomitant]

REACTIONS (2)
  - HYPOGLYCAEMIA [None]
  - LOSS OF CONSCIOUSNESS [None]
